FAERS Safety Report 5914481-5 (Version None)
Quarter: 2008Q4

REPORT INFORMATION
  Report Type: 
  Country: None (occurrence: None)
  Receive Date: 20081008
  Receipt Date: 20080924
  Transmission Date: 20090506
  Serious: Yes (Other)
  Sender: FDA-Public Use
  Company Number: CERZ-1000306

PATIENT
  Age: 35 Year
  Sex: Female
  Weight: 67 kg

DRUGS (4)
  1. CEREZYME [Suspect]
     Indication: CYSTITIS NONINFECTIVE
     Dosage: INTRAVENOUS; 23 UG/KG, Q2W, INTRAVENOUS
     Route: 042
     Dates: start: 20061106
  2. CEREZYME [Suspect]
     Indication: GAUCHER'S DISEASE
     Dosage: INTRAVENOUS; 23 UG/KG, Q2W, INTRAVENOUS
     Route: 042
     Dates: start: 20061106
  3. NORFLOXACIN [Suspect]
     Indication: CYSTITIS NONINFECTIVE
     Dates: start: 20060701, end: 20060701
  4. NORFLOXACIN [Suspect]
     Indication: GAUCHER'S DISEASE
     Dates: start: 20060701, end: 20060701

REACTIONS (3)
  - ABORTION SPONTANEOUS [None]
  - CYSTITIS NONINFECTIVE [None]
  - DRUG EXPOSURE DURING PREGNANCY [None]
